FAERS Safety Report 6131337-6 (Version None)
Quarter: 2009Q1

REPORT INFORMATION
  Report Type: 
  Country: None (occurrence: None)
  Receive Date: 20090325
  Receipt Date: 20080321
  Transmission Date: 20090719
  Serious: Yes (Other)
  Sender: FDA-Public Use
  Company Number: US-BRISTOL-MYERS SQUIBB COMPANY-14123400

PATIENT
  Sex: Male

DRUGS (3)
  1. ERBITUX [Suspect]
     Indication: COLORECTAL CANCER METASTATIC
  2. BENADRYL [Concomitant]
     Indication: PREMEDICATION
     Route: 042
  3. DEXAMETHASONE TAB [Concomitant]
     Indication: PREMEDICATION
     Route: 042

REACTIONS (1)
  - OBSTRUCTIVE AIRWAYS DISORDER [None]
